FAERS Safety Report 4917677-4 (Version None)
Quarter: 2006Q1

REPORT INFORMATION
  Report Type: 
  Country: None (occurrence: None)
  Receive Date: 20060221
  Receipt Date: 20060210
  Transmission Date: 20060701
  Serious: Yes (Hospitalization)
  Sender: FDA-Public Use
  Company Number: JP-JNJFOC-20060202972

PATIENT
  Age: 71 Year
  Sex: Female

DRUGS (4)
  1. REMICADE [Suspect]
     Route: 042
  2. REMICADE [Suspect]
     Indication: RHEUMATOID ARTHRITIS
     Route: 042
  3. PYRAMIDE [Suspect]
     Indication: TUBERCULOSIS
  4. ISONIAZID [Concomitant]

REACTIONS (2)
  - LIVER DISORDER [None]
  - TUBERCULOSIS [None]
